FAERS Safety Report 8066327-X (Version None)
Quarter: 2012Q1

REPORT INFORMATION
  Report Type: 
  Country: None (occurrence: None)
  Receive Date: 20120124
  Receipt Date: 20120112
  Transmission Date: 20120608
  Serious: Yes (Hospitalization)
  Sender: FDA-Public Use
  Company Number: FR-ELI_LILLY_AND_COMPANY-FR201112002771

PATIENT
  Age: 84 Year
  Sex: Female
  Weight: 66 kg

DRUGS (3)
  1. FORTEO [Suspect]
     Indication: OSTEOPOROSIS
     Dosage: 20 UG, QD
     Route: 058
     Dates: start: 20100801
  2. ANGIOTENSIN II ANTAGONISTS [Concomitant]
  3. DIURETICS [Concomitant]

REACTIONS (3)
  - HOSPITALISATION [None]
  - HYPERCREATINAEMIA [None]
  - RENAL FAILURE [None]
